FAERS Safety Report 13479813 (Version 3)
Quarter: 2017Q3

REPORT INFORMATION
  Report Type: Report from Study
  Country: US (occurrence: US)
  Receive Date: 20170425
  Receipt Date: 20170828
  Transmission Date: 20171127
  Serious: Yes (Other)
  Sender: FDA-Public Use
  Company Number: PHEH2017US011992

PATIENT
  Age: 20 Year
  Sex: Female

DRUGS (4)
  1. AFINITOR [Suspect]
     Active Substance: EVEROLIMUS
     Dosage: 5 MG, QD
     Route: 048
     Dates: start: 201707
  2. AFINITOR [Suspect]
     Active Substance: EVEROLIMUS
     Dosage: 7.5 MG, QD
     Route: 048
     Dates: start: 201708
  3. AFINITOR [Suspect]
     Active Substance: EVEROLIMUS
     Indication: ANGIOMYOLIPOMA
     Dosage: 5 MG, BID
     Route: 048
     Dates: start: 20170312
  4. AFINITOR [Suspect]
     Active Substance: EVEROLIMUS
     Dosage: 10 MG, QD
     Route: 048
     Dates: start: 20170501

REACTIONS (14)
  - Orthopnoea [Unknown]
  - Headache [Unknown]
  - Stomatitis [Unknown]
  - Fatigue [Unknown]
  - Lower respiratory tract infection fungal [Unknown]
  - Memory impairment [Unknown]
  - Chest pain [Unknown]
  - Chest discomfort [Unknown]
  - Nausea [Unknown]
  - Hypoaesthesia [Unknown]
  - Swelling [Unknown]
  - Drug level below therapeutic [Unknown]
  - Tuberculosis [Unknown]
  - Aortic aneurysm [Unknown]

NARRATIVE: CASE EVENT DATE: 20170315
